FAERS Safety Report 9528207 (Version 1)
Quarter: 2013Q3

REPORT INFORMATION
  Report Type: Spontaneous
  Country: CA (occurrence: CA)
  Receive Date: 20130917
  Receipt Date: 20130917
  Transmission Date: 20140515
  Serious: Yes (Death, Life-Threatening, Hospitalization)
  Sender: FDA-Public Use
  Company Number: CA-ROCHE-1273492

PATIENT
  Age: 16 Year
  Sex: Female
  Weight: 90 kg

DRUGS (1)
  1. RITUXAN [Suspect]
     Indication: PRODUCT USED FOR UNKNOWN INDICATION
     Dosage: THERAPY DURATION: ONCE
     Route: 042

REACTIONS (3)
  - Toxic epidermal necrolysis [Fatal]
  - Skin burning sensation [Unknown]
  - Rash erythematous [Unknown]
